FAERS Safety Report 7164263-4 (Version None)
Quarter: 2010Q4

REPORT INFORMATION
  Report Type: 
  Country: None (occurrence: None)
  Receive Date: 20101215
  Receipt Date: 20101206
  Transmission Date: 20110411
  Serious: Yes (Other)
  Sender: FDA-Public Use
  Company Number: US-WATSON-2010-15825

PATIENT
  Age: 8 Week

DRUGS (1)
  1. DOXEPIN HCL [Suspect]
     Indication: DEPRESSION
     Dosage: UNK
     Route: 063

REACTIONS (2)
  - RESPIRATORY DEPRESSION [None]
  - SOMNOLENCE [None]
